FAERS Safety Report 10175388 (Version 2)
Quarter: 2014Q4

REPORT INFORMATION
  Report Type: Spontaneous
  Country: CA (occurrence: CA)
  Receive Date: 20140515
  Receipt Date: 20141126
  Transmission Date: 20150528
  Serious: Yes (Other)
  Sender: FDA-Public Use
  Company Number: CA-BAXTER-2014BAX023283

PATIENT
  Age: 58 Year
  Sex: Female

DRUGS (5)
  1. AMINOPHYLLINE [Suspect]
     Active Substance: AMINOPHYLLINE
     Indication: PRODUCT USED FOR UNKNOWN INDICATION
     Route: 042
  2. CARDIOLITE [Suspect]
     Active Substance: TECHNETIUM TC-99M SESTAMIBI\TETRAKIS(2-METHOXYISOBUTYLISOCYANIDE)COPPER(I) TETRAFLUOROBORATE
     Indication: PRODUCT USED FOR UNKNOWN INDICATION
     Route: 042
  3. DIPYRIDAMOLE INJECTION USP [Suspect]
     Active Substance: DIPYRIDAMOLE
     Indication: PRODUCT USED FOR UNKNOWN INDICATION
     Route: 042
  4. 0.9% SODIUM CHLORIDE INJECTION [Suspect]
     Active Substance: SODIUM CHLORIDE
     Indication: PRODUCT USED FOR UNKNOWN INDICATION
     Route: 042
  5. 5% DEXTROSE INJECTION [Suspect]
     Active Substance: DEXTROSE
     Indication: PRODUCT USED FOR UNKNOWN INDICATION
     Route: 042

REACTIONS (2)
  - Dysphonia [Unknown]
  - Urticaria [Unknown]
